FAERS Safety Report 8977094 (Version 1)
Quarter: 2012Q4

REPORT INFORMATION
  Report Type: 
  Country: DE (occurrence: DE)
  Receive Date: 20121220
  Receipt Date: 20121220
  Transmission Date: 20130627
  Serious: Yes (Other)
  Sender: FDA-Public Use
  Company Number: DE-TEVA-375350GER

PATIENT
  Sex: Male

DRUGS (3)
  1. TRAMADOL [Suspect]
     Indication: OSTEOARTHRITIS
     Dosage: 60 Gtt Daily;
     Dates: start: 2010
  2. MARCUMAR [Concomitant]
     Indication: CEREBROVASCULAR ACCIDENT
  3. MARCUMAR [Concomitant]
     Indication: PLATELET AGGREGATION INHIBITION

REACTIONS (8)
  - Suicidal ideation [Unknown]
  - Anxiety [Unknown]
  - Tremor [Unknown]
  - Hyperhidrosis [Unknown]
  - Blood pressure increased [Unknown]
  - Heart rate increased [Unknown]
  - Withdrawal syndrome [Unknown]
  - Feeling abnormal [None]
